FAERS Safety Report 5699406-2 (Version None)
Quarter: 2008Q2

REPORT INFORMATION
  Report Type: 
  Country: None (occurrence: None)
  Receive Date: 20080404
  Receipt Date: 20080320
  Transmission Date: 20081010
  Serious: Yes (Other)
  Sender: FDA-Public Use
  Company Number: 2008PV034697

PATIENT
  Sex: Female

DRUGS (2)
  1. SYMLIN [Suspect]
     Indication: TYPE 2 DIABETES MELLITUS
     Dosage: 30 MCG; QD; SC
     Route: 058
     Dates: start: 20080101
  2. METFORMIN HCL [Concomitant]

REACTIONS (6)
  - BLOOD GLUCOSE INCREASED [None]
  - HYPERHIDROSIS [None]
  - SURGERY [None]
  - THIRST [None]
  - TREMOR [None]
  - VISION BLURRED [None]
